FAERS Safety Report 4677274-5 (Version None)
Quarter: 2005Q2

REPORT INFORMATION
  Report Type: 
  Country: None (occurrence: None)
  Receive Date: 20050526
  Receipt Date: 20050517
  Transmission Date: 20051028
  Serious: No
  Sender: FDA-Public Use
  Company Number: DE-2005-008037

PATIENT

DRUGS (1)
  1. MAGNEVIST [Suspect]
     Indication: ANGIOGRAM
     Dosage: 1 DOSE

REACTIONS (3)
  - CARDIOVASCULAR DISORDER [None]
  - DIALYSIS [None]
  - SEPSIS [None]
